FAERS Safety Report 15699197 (Version 2)
Quarter: 2018Q4

REPORT INFORMATION
  Report Type: Spontaneous
  Country: US (occurrence: US)
  Receive Date: 20181207
  Receipt Date: 20181212
  Transmission Date: 20190205
  Serious: Yes (Death, Hospitalization)
  Sender: FDA-Public Use
  Company Number: US-HORIZON-ACT-0367-2018

PATIENT
  Age: 29 Year
  Sex: Male

DRUGS (1)
  1. ACTIMMUNE [Suspect]
     Active Substance: INTERFERON GAMMA-1B
     Indication: FRIEDREICH^S ATAXIA
     Dosage: 100 MCG MONDAYS AND THURSDAYS
     Route: 058
     Dates: start: 201609, end: 201810

REACTIONS (3)
  - Drug ineffective for unapproved indication [Unknown]
  - Off label use [Unknown]
  - Pneumonia [Fatal]

NARRATIVE: CASE EVENT DATE: 20181114
